FAERS Safety Report 9155392 (Version 1)
Quarter: 2013Q1

REPORT INFORMATION
  Report Type: Spontaneous
  Country: FR (occurrence: FR)
  Receive Date: 20130311
  Receipt Date: 20130311
  Transmission Date: 20140127
  Serious: Yes (Other)
  Sender: FDA-Public Use
  Company Number: FR-ABBOTT-13P-056-1058482-00

PATIENT
  Age: 49 Year
  Sex: Male

DRUGS (2)
  1. HUMIRA [Suspect]
     Indication: PSORIASIS
     Route: 058
     Dates: start: 20111010, end: 20130123
  2. EFFEXOR [Suspect]
     Indication: PRODUCT USED FOR UNKNOWN INDICATION
     Route: 048
     Dates: start: 2011

REACTIONS (9)
  - Condition aggravated [Unknown]
  - Depression [Unknown]
  - Abnormal behaviour [Unknown]
  - Anxiety [Unknown]
  - Insomnia [Unknown]
  - Psychiatric symptom [Unknown]
  - Stress [Unknown]
  - Musculoskeletal chest pain [Unknown]
  - Asthenia [Unknown]
